FAERS Safety Report 4829233-7 (Version None)
Quarter: 2005Q4

REPORT INFORMATION
  Report Type: 
  Country: None (occurrence: None)
  Receive Date: 20051028
  Receipt Date: 20050909
  Transmission Date: 20060501
  Serious: No
  Sender: FDA-Public Use
  Company Number: COT_0212_2005

PATIENT
  Age: 33 Year
  Sex: Female
  Weight: 59 kg

DRUGS (7)
  1. VENTAVIS [Suspect]
     Indication: PULMONARY HYPERTENSION
     Dosage: 5 MCG VARIABLE IH
     Route: 055
     Dates: start: 20050805
  2. TRACLEER [Concomitant]
  3. FLOLAN [Concomitant]
  4. XANAX [Concomitant]
  5. AMBIEN [Concomitant]
  6. ULTRAM [Concomitant]
  7. MULTI-VITAMIN [Concomitant]

REACTIONS (3)
  - HEART RATE INCREASED [None]
  - OXYGEN SATURATION DECREASED [None]
  - PALPITATIONS [None]
